FAERS Safety Report 6057004-5 (Version None)
Quarter: 2009Q1

REPORT INFORMATION
  Report Type: 
  Country: None (occurrence: None)
  Receive Date: 20090129
  Receipt Date: 20090129
  Transmission Date: 20090719
  Serious: Yes (Other)
  Sender: FDA-Public Use
  Company Number: None

PATIENT
  Age: 53 Year
  Sex: Female
  Weight: 54.4316 kg

DRUGS (3)
  1. FOSAMAX [Suspect]
     Indication: OSTEOPENIA
     Dosage: ONE BOTTLE ONCE A WEEK PO
     Route: 048
     Dates: start: 20030101, end: 20040101
  2. FOSAMAX [Suspect]
     Indication: OSTEOPENIA
     Dosage: ONE BOTTLE ONCE A WEEK PO
     Route: 048
     Dates: start: 20060101, end: 20070101
  3. FOSAMAX [Suspect]
     Indication: OSTEOPENIA
     Dosage: ONE BOTTLE ONCE A WEEK PO
     Route: 048
     Dates: start: 20080101

REACTIONS (6)
  - APHTHOUS STOMATITIS [None]
  - CAUSTIC INJURY [None]
  - DRUG INTOLERANCE [None]
  - GASTRIC ULCER [None]
  - GASTROINTESTINAL PAIN [None]
  - OESOPHAGEAL PAIN [None]
